FAERS Safety Report 23949394 (Version 1)
Quarter: 2024Q2

REPORT INFORMATION
  Report Type: Spontaneous
  Country: ES (occurrence: ES)
  Receive Date: 20240607
  Receipt Date: 20240607
  Transmission Date: 20240716
  Serious: Yes (Hospitalization, Other)
  Sender: FDA-Public Use
  Company Number: ES-SUN PHARMACEUTICAL INDUSTRIES LTD-2024R1-450000

PATIENT
  Age: 62 Year
  Sex: Male

DRUGS (2)
  1. DEXAMETHASONE [Suspect]
     Active Substance: DEXAMETHASONE
     Indication: Pain
     Dosage: 4 MILLIGRAM
     Route: 065
  2. LEVOBUPIVACAINE [Suspect]
     Active Substance: LEVOBUPIVACAINE
     Indication: Pain
     Dosage: 15 MILLILITER
     Route: 065

REACTIONS (5)
  - Bradycardia [Unknown]
  - Dizziness [Unknown]
  - Bladder dilatation [Unknown]
  - Muscular weakness [Recovered/Resolved]
  - Oedema [Unknown]
